FAERS Safety Report 14499699 (Version 1)
Quarter: 2018Q1

REPORT INFORMATION
  Report Type: Spontaneous
  Country: US (occurrence: US)
  Receive Date: 20180207
  Receipt Date: 20180207
  Transmission Date: 20180509
  Serious: No
  Sender: FDA-Public Use
  Company Number: US-PERRIGO-17US031731

PATIENT
  Age: 39 Year
  Sex: Male
  Weight: 120.18 kg

DRUGS (1)
  1. CETIRIZINE HYDROCHLORIDE. [Suspect]
     Active Substance: CETIRIZINE HYDROCHLORIDE
     Indication: DUST ALLERGY
     Dosage: 20 MG, SINGLE
     Route: 048
     Dates: start: 20171218, end: 20171218

REACTIONS (3)
  - Nightmare [Recovering/Resolving]
  - Incorrect dose administered [Recovered/Resolved]
  - Palpitations [Recovered/Resolved]

NARRATIVE: CASE EVENT DATE: 20171218
